FAERS Safety Report 9144514 (Version 1)
Quarter: 2013Q1

REPORT INFORMATION
  Report Type: Spontaneous
  Country: US (occurrence: US)
  Receive Date: 20130306
  Receipt Date: 20130306
  Transmission Date: 20140127
  Serious: No
  Sender: FDA-Public Use
  Company Number: US-ASTRAZENECA-2013SE13262

PATIENT
  Age: 61 Year
  Sex: 0

DRUGS (1)
  1. SYMBICORT PMDI [Suspect]
     Indication: ASTHMA
     Dosage: 2 PUFFS, BID
     Route: 055

REACTIONS (2)
  - Vocal cord disorder [Unknown]
  - Intentional drug misuse [Unknown]
